FAERS Safety Report 18176257 (Version 3)
Quarter: 2021Q1

REPORT INFORMATION
  Report Type: Spontaneous
  Country: US (occurrence: US)
  Receive Date: 20200820
  Receipt Date: 20210317
  Transmission Date: 20210419
  Serious: Yes (Other)
  Sender: FDA-Public Use
  Company Number: US-GLAXOSMITHKLINE-US2020165989

PATIENT
  Sex: Male

DRUGS (9)
  1. RANITIDINE. [Suspect]
     Active Substance: RANITIDINE
     Dosage: 150 MG, 1?2X A MONTH
     Route: 065
     Dates: start: 199601, end: 201912
  2. ZANTAC [Suspect]
     Active Substance: RANITIDINE HYDROCHLORIDE
     Dosage: 150 MG, 1?2X A MONTH
     Route: 065
     Dates: start: 199601, end: 201912
  3. RANITIDINE. [Suspect]
     Active Substance: RANITIDINE
     Indication: GASTROOESOPHAGEAL REFLUX DISEASE
     Dosage: 75 MG, 1?2X A MONTH
     Route: 065
     Dates: start: 199601, end: 201912
  4. RANITIDINE. [Suspect]
     Active Substance: RANITIDINE
     Dosage: 150 MG, 1?2X A MONTH
     Route: 065
     Dates: start: 199601, end: 201912
  5. ZANTAC [Suspect]
     Active Substance: RANITIDINE HYDROCHLORIDE
     Indication: GASTROOESOPHAGEAL REFLUX DISEASE
     Dosage: 75 MG, 1?2X A MONTH
     Route: 065
     Dates: start: 199601, end: 201912
  6. ZANTAC [Suspect]
     Active Substance: RANITIDINE HYDROCHLORIDE
     Dates: start: 19950115, end: 20191215
  7. ZANTAC [Suspect]
     Active Substance: RANITIDINE HYDROCHLORIDE
     Indication: GASTROOESOPHAGEAL REFLUX DISEASE
     Dosage: 75 MG, 1?2X A MONTH
     Route: 065
     Dates: start: 199601, end: 201912
  8. ZANTAC [Suspect]
     Active Substance: RANITIDINE HYDROCHLORIDE
     Dosage: 150 MG, 1?2X A MONTH
     Route: 065
     Dates: start: 199601, end: 201912
  9. RANITIDINE. [Suspect]
     Active Substance: RANITIDINE
     Indication: GASTROOESOPHAGEAL REFLUX DISEASE
     Dosage: 75 M, 1?2X A MONTH
     Route: 065
     Dates: start: 199601, end: 201912

REACTIONS (3)
  - Colorectal cancer [Unknown]
  - Gastric cancer [Unknown]
  - Hepatic cancer [Unknown]
